FAERS Safety Report 9140949 (Version 1)
Quarter: 2013Q1

REPORT INFORMATION
  Report Type: Spontaneous
  Country: HR (occurrence: HR)
  Receive Date: 20130305
  Receipt Date: 20130305
  Transmission Date: 20140127
  Serious: Yes (Other)
  Sender: FDA-Public Use
  Company Number: HR-PFIZER INC-2013074182

PATIENT
  Sex: Male
  Weight: 95 kg

DRUGS (4)
  1. AMLODIPINE/ATORVASTATIN [Suspect]
     Indication: ESSENTIAL HYPERTENSION
     Dosage: [AMLODIPINE 5 MG/ ATORVASTATIN 10 MG], 1X/DAY
  2. AMLODIPINE/ATORVASTATIN [Suspect]
     Indication: HYPERLIPIDAEMIA
  3. RAMIPRIL [Concomitant]
     Indication: HYPERTENSION
     Dosage: 5 MG, 1X/DAY
  4. ATORVASTATIN CALCIUM [Concomitant]
     Indication: HYPERLIPIDAEMIA
     Dosage: 10 MG, UNK

REACTIONS (2)
  - Hepatic steatosis [Unknown]
  - Erythema [Recovered/Resolved]
